FAERS Safety Report 25346283 (Version 2)
Quarter: 2025Q3

REPORT INFORMATION
  Report Type: Spontaneous
  Country: US (occurrence: US)
  Receive Date: 20250522
  Receipt Date: 20250810
  Transmission Date: 20251020
  Serious: No
  Sender: ALEXION PHARMACEUTICALS
  Company Number: US-AstraZeneca-CH-00873031A

PATIENT
  Sex: Female

DRUGS (1)
  1. CALQUENCE [Suspect]
     Active Substance: ACALABRUTINIB
     Dosage: 100 MILLIGRAM, BID
     Route: 065
     Dates: start: 202404

REACTIONS (8)
  - Fatigue [Unknown]
  - Contusion [Unknown]
  - Blood creatine abnormal [Unknown]
  - Glomerular filtration rate abnormal [Unknown]
  - Blood urea abnormal [Unknown]
  - Tremor [Unknown]
  - White blood cell count decreased [Unknown]
  - Chills [Unknown]
